FAERS Safety Report 18186240 (Version 1)
Quarter: 2020Q3

REPORT INFORMATION
  Report Type: Spontaneous
  Country: US (occurrence: US)
  Receive Date: 20200822
  Receipt Date: 20200822
  Transmission Date: 20201103
  Serious: Yes (Other)
  Sender: FDA-Public Use
  Company Number: None

PATIENT
  Age: 32 Year
  Sex: Female
  Weight: 63 kg

DRUGS (6)
  1. SPIRONOLACTONE. [Concomitant]
     Active Substance: SPIRONOLACTONE
  2. VITAMIN D [Concomitant]
     Active Substance: VITAMIN D NOS
  3. STIMATE [Suspect]
     Active Substance: DESMOPRESSIN ACETATE
     Indication: VON WILLEBRAND^S DISEASE
     Dosage: QUANITY: 1 SPRAY
     Route: 045
     Dates: start: 20200625, end: 20200625
  4. SPIRONOLACTONE. [Concomitant]
     Active Substance: SPIRONOLACTONE
  5. PROBIOTIC [Concomitant]
     Active Substance: PROBIOTICS NOS
  6. LO LOESTRIN FE [Concomitant]
     Active Substance: ETHINYL ESTRADIOL\NORETHINDRONE ACETATE

REACTIONS (5)
  - Dizziness [None]
  - Fatigue [None]
  - Nausea [None]
  - Headache [None]
  - Recalled product administered [None]

NARRATIVE: CASE EVENT DATE: 20200627
